FAERS Safety Report 7151980-5 (Version None)
Quarter: 2010Q4

REPORT INFORMATION
  Report Type: 
  Country: None (occurrence: None)
  Receive Date: 20101211
  Receipt Date: 20101201
  Transmission Date: 20110411
  Serious: Yes (Hospitalization, Other)
  Sender: FDA-Public Use
  Company Number: BR-PFIZER INC-2010161511

PATIENT
  Age: 37 Year
  Sex: Female

DRUGS (11)
  1. LYRICA [Suspect]
     Dosage: 75 MG, 1X/DAY
     Route: 048
     Dates: start: 20101101
  2. GABAPENTIN [Suspect]
     Indication: INTERVERTEBRAL DISC PROTRUSION
     Dosage: 75 MG, 2X/DAY
     Route: 048
     Dates: start: 20050901, end: 20090501
  3. GABAPENTIN [Suspect]
     Indication: FIBROMYALGIA
  4. CELEBRA [Concomitant]
     Indication: SEDATION
     Dosage: UNK
     Dates: start: 20060101, end: 20060101
  5. CELEBRA [Concomitant]
     Indication: PAIN
  6. PAMELOR [Concomitant]
     Indication: SEDATION
     Dosage: UNK
     Dates: start: 20060101, end: 20060101
  7. PAMELOR [Concomitant]
     Indication: PAIN
  8. NEOZINE [Concomitant]
     Indication: SEDATION
     Dosage: UNK
     Dates: start: 20060101, end: 20060101
  9. NEOZINE [Concomitant]
     Indication: PAIN
  10. TRAZODONE [Concomitant]
     Dosage: UNK
     Dates: start: 20101101
  11. BROMAZEPAM [Concomitant]
     Dosage: UNK
     Dates: start: 20101101

REACTIONS (12)
  - BLADDER PAIN [None]
  - CONDITION AGGRAVATED [None]
  - CONSTIPATION [None]
  - CSF TEST ABNORMAL [None]
  - DRUG INEFFECTIVE [None]
  - GASTROINTESTINAL OEDEMA [None]
  - INTERVERTEBRAL DISC DISORDER [None]
  - PAIN [None]
  - PROCTALGIA [None]
  - SEDATION [None]
  - UROGENITAL TRICHOMONIASIS [None]
  - WEIGHT INCREASED [None]
